FAERS Safety Report 5279433-X (Version None)
Quarter: 2007Q1

REPORT INFORMATION
  Report Type: 
  Country: None (occurrence: None)
  Receive Date: 20070328
  Receipt Date: 20070314
  Transmission Date: 20070707
  Serious: Yes (Hospitalization)
  Sender: FDA-Public Use
  Company Number: US-ELI_LILLY_AND_COMPANY-US200703002927

PATIENT
  Age: 27 Year
  Sex: Female

DRUGS (2)
  1. CYMBALTA [Suspect]
     Indication: POSTPARTUM DEPRESSION
     Dosage: 20 MG, DAILY (1/D)
     Dates: start: 20060101, end: 20070308
  2. CLONAZEPAM [Concomitant]

REACTIONS (10)
  - ASTHENIA [None]
  - BLOOD PRESSURE ABNORMAL [None]
  - CHILLS [None]
  - DIZZINESS [None]
  - DRUG INEFFECTIVE [None]
  - DRUG WITHDRAWAL SYNDROME [None]
  - HYPERVENTILATION [None]
  - NAUSEA [None]
  - PALPITATIONS [None]
  - WEIGHT INCREASED [None]
